FAERS Safety Report 13368288 (Version 1)
Quarter: 2017Q1

REPORT INFORMATION
  Report Type: Spontaneous
  Country: US (occurrence: US)
  Receive Date: 20170324
  Receipt Date: 20170324
  Transmission Date: 20170429
  Serious: Yes (Other)
  Sender: FDA-Public Use
  Company Number: US-BIOGEN-2017BI00375857

PATIENT
  Age: 51 Year
  Sex: Female

DRUGS (30)
  1. PROVENTIL [Concomitant]
     Active Substance: ALBUTEROL
     Indication: PRODUCT USED FOR UNKNOWN INDICATION
     Dosage: 90 MCG/ACT; 1 TO 2 AS NEEDED
     Route: 065
  2. COLACE [Concomitant]
     Active Substance: DOCUSATE SODIUM
     Indication: PRODUCT USED FOR UNKNOWN INDICATION
     Dosage: AS NEEDED
     Route: 048
  3. DILAUDID [Concomitant]
     Active Substance: HYDROMORPHONE HYDROCHLORIDE
     Indication: PAIN
     Dosage: AS NEEDED
     Route: 048
  4. LYRICA [Concomitant]
     Active Substance: PREGABALIN
     Dosage: PATIENT TAKING DIFFENTLY; Q HS
     Route: 048
  5. SUDAFED [Concomitant]
     Active Substance: PSEUDOEPHEDRINE HYDROCHLORIDE
     Indication: PRODUCT USED FOR UNKNOWN INDICATION
     Dosage: AS NEEDED
     Route: 048
  6. TOPAMAX [Concomitant]
     Active Substance: TOPIRAMATE
     Indication: PRODUCT USED FOR UNKNOWN INDICATION
     Route: 048
  7. LYRICA [Concomitant]
     Active Substance: PREGABALIN
     Dosage: PATIENT TAKING DIFFENTLY; Q NOON
     Route: 048
  8. MYCOSTATIN [Concomitant]
     Active Substance: NYSTATIN
     Dosage: APPLY TO AFFECTED AREA
     Route: 061
  9. ZANAFLEX [Concomitant]
     Active Substance: TIZANIDINE HYDROCHLORIDE
     Indication: PRODUCT USED FOR UNKNOWN INDICATION
     Route: 048
  10. ADVIL [Concomitant]
     Active Substance: IBUPROFEN
     Indication: PAIN
     Dosage: AS NEEDED
     Route: 048
  11. ZOFRAN ODT [Concomitant]
     Active Substance: ONDANSETRON HYDROCHLORIDE
     Indication: PRODUCT USED FOR UNKNOWN INDICATION
     Dosage: AS NEEDED
     Route: 048
  12. VITAMIN D3 [Concomitant]
     Active Substance: CHOLECALCIFEROL
     Indication: PRODUCT USED FOR UNKNOWN INDICATION
     Route: 048
  13. SOLU-MEDROL [Concomitant]
     Active Substance: METHYLPREDNISOLONE SODIUM SUCCINATE
     Indication: PRODUCT USED FOR UNKNOWN INDICATION
     Route: 042
  14. EXALGO [Concomitant]
     Active Substance: HYDROMORPHONE HYDROCHLORIDE
     Indication: PRODUCT USED FOR UNKNOWN INDICATION
     Dosage: AS NEEDED
     Route: 048
  15. XYZAL [Concomitant]
     Active Substance: LEVOCETIRIZINE DIHYDROCHLORIDE
     Indication: PRODUCT USED FOR UNKNOWN INDICATION
     Route: 048
  16. LYRICA [Concomitant]
     Active Substance: PREGABALIN
     Dosage: PATIENT TAKING DIFFENTLY; QAM
     Route: 048
  17. ANTIVERT [Concomitant]
     Active Substance: MECLIZINE HYDROCHLORIDE
     Indication: PRODUCT USED FOR UNKNOWN INDICATION
     Dosage: PRN UP TO FIVE TIMES DAILY
     Route: 048
  18. DEPO-PROVERA [Concomitant]
     Active Substance: MEDROXYPROGESTERONE ACETATE
     Indication: PRODUCT USED FOR UNKNOWN INDICATION
     Route: 030
  19. PROVIGIL [Concomitant]
     Active Substance: MODAFINIL
     Indication: PRODUCT USED FOR UNKNOWN INDICATION
     Route: 048
  20. XARELTO [Concomitant]
     Active Substance: RIVAROXABAN
     Indication: PRODUCT USED FOR UNKNOWN INDICATION
     Dosage: EVERY EVENING
     Route: 048
  21. ZOCOR [Concomitant]
     Active Substance: SIMVASTATIN
     Indication: PRODUCT USED FOR UNKNOWN INDICATION
     Route: 048
  22. PLEGRIDY [Suspect]
     Active Substance: PEGINTERFERON BETA-1A
     Indication: MULTIPLE SCLEROSIS
     Route: 058
     Dates: start: 20160903
  23. CYMBALTA [Concomitant]
     Active Substance: DULOXETINE HYDROCHLORIDE
     Indication: PRODUCT USED FOR UNKNOWN INDICATION
     Route: 048
  24. VITAMIN B12 [Concomitant]
     Active Substance: CYANOCOBALAMIN
     Indication: PRODUCT USED FOR UNKNOWN INDICATION
     Dosage: TBCR
     Route: 048
  25. MOTRIN [Concomitant]
     Active Substance: IBUPROFEN
     Indication: PAIN
     Dosage: AS NEEDED
     Route: 048
  26. LYRICA [Concomitant]
     Active Substance: PREGABALIN
     Indication: PRODUCT USED FOR UNKNOWN INDICATION
     Route: 048
  27. DIASENSE MAGNESIUM [Concomitant]
     Indication: PRODUCT USED FOR UNKNOWN INDICATION
     Route: 048
  28. MYCOSTATIN [Concomitant]
     Active Substance: NYSTATIN
     Indication: PRODUCT USED FOR UNKNOWN INDICATION
     Dosage: AS NEEDED
     Route: 061
  29. LYRICA [Concomitant]
     Active Substance: PREGABALIN
     Route: 048
  30. FISH OIL [Concomitant]
     Active Substance: FISH OIL
     Indication: PRODUCT USED FOR UNKNOWN INDICATION
     Route: 048

REACTIONS (6)
  - Anaemia [Unknown]
  - Blood alkaline phosphatase increased [Unknown]
  - Gastric bypass [Unknown]
  - Vena cava filter insertion [Unknown]
  - Leukopenia [Unknown]
  - Drug-induced liver injury [Unknown]

NARRATIVE: CASE EVENT DATE: 20170303
